FAERS Safety Report 10476624 (Version 2)
Quarter: 2014Q4

REPORT INFORMATION
  Report Type: Spontaneous
  Country: IT (occurrence: IT)
  Receive Date: 20140925
  Receipt Date: 20141222
  Transmission Date: 20150528
  Serious: Yes (Death)
  Sender: FDA-Public Use
  Company Number: IT-SA-2014SA130752

PATIENT
  Age: 63 Year
  Sex: Male

DRUGS (2)
  1. ARAVA [Suspect]
     Active Substance: LEFLUNOMIDE
     Indication: PSORIATIC ARTHROPATHY
     Route: 048
  2. HUMIRA [Suspect]
     Active Substance: ADALIMUMAB
     Route: 058

REACTIONS (6)
  - Abdominal pain [Fatal]
  - Vomiting [Fatal]
  - Pyrexia [Fatal]
  - Chills [Fatal]
  - Abdominal pain upper [Fatal]
  - Transaminases increased [Fatal]

NARRATIVE: CASE EVENT DATE: 20121225
